FAERS Safety Report 18194674 (Version 2)
Quarter: 2020Q3

REPORT INFORMATION
  Report Type: Spontaneous
  Country: US (occurrence: US)
  Receive Date: 20200826
  Receipt Date: 20200910
  Transmission Date: 20201103
  Serious: Yes (Other)
  Sender: FDA-Public Use
  Company Number: US-BEH-2020121538

PATIENT
  Age: 19 Year
  Sex: Male
  Weight: 86.62 kg

DRUGS (1)
  1. HIZENTRA [Suspect]
     Active Substance: HUMAN IMMUNOGLOBULIN G
     Indication: IMMUNODEFICIENCY COMMON VARIABLE
     Dosage: 16 GRAM, QOW
     Route: 058
     Dates: start: 20200819

REACTIONS (8)
  - Tinnitus [Recovered/Resolved]
  - Presyncope [Recovered/Resolved]
  - Syncope [Recovered/Resolved]
  - Transient aphasia [Recovered/Resolved]
  - Pain [Unknown]
  - Loss of consciousness [Recovered/Resolved]
  - Thirst [Unknown]
  - Dehydration [Unknown]

NARRATIVE: CASE EVENT DATE: 202008
